FAERS Safety Report 9749829 (Version 1)
Quarter: 2013Q4

REPORT INFORMATION
  Report Type: Spontaneous
  Country: US (occurrence: US)
  Receive Date: 20131212
  Receipt Date: 20131212
  Transmission Date: 20140711
  Serious: No
  Sender: FDA-Public Use
  Company Number: US-PFIZER INC-2013353421

PATIENT
  Age: 58 Year
  Sex: Female

DRUGS (4)
  1. ACCUPRIL [Suspect]
     Dosage: UNK
  2. PROCARDIA [Suspect]
     Dosage: UNK
  3. LOPRESSOR [Suspect]
     Dosage: UNK
  4. ULTRAM [Suspect]
     Dosage: UNK

REACTIONS (1)
  - Drug hypersensitivity [Unknown]
